FAERS Safety Report 21479277 (Version 1)
Quarter: 2022Q4

REPORT INFORMATION
  Report Type: Spontaneous
  Country: US (occurrence: US)
  Receive Date: 20221019
  Receipt Date: 20221019
  Transmission Date: 20230112
  Serious: No
  Sender: FDA-Public Use
  Company Number: US-ALLERGAN-2232575US

PATIENT
  Age: 77 Year
  Sex: Female
  Weight: 59.87 kg

DRUGS (2)
  1. ALPHAGAN P [Suspect]
     Active Substance: BRIMONIDINE TARTRATE
     Indication: Glaucoma
     Dosage: UNK
     Dates: start: 202209
  2. LUMIGAN [Concomitant]
     Active Substance: BIMATOPROST
     Indication: Glaucoma

REACTIONS (4)
  - Wrong dose [Unknown]
  - Eye pain [Not Recovered/Not Resolved]
  - Product delivery mechanism issue [Unknown]
  - Product container issue [Unknown]

NARRATIVE: CASE EVENT DATE: 20220901
